FAERS Safety Report 12810875 (Version 1)
Quarter: 2016Q4

REPORT INFORMATION
  Report Type: Spontaneous
  Country: US (occurrence: US)
  Receive Date: 20161005
  Receipt Date: 20161005
  Transmission Date: 20170207
  Serious: No
  Sender: FDA-Public Use
  Company Number: US-GLAXOSMITHKLINE-US2016GSK145277

PATIENT
  Age: 70 Year
  Sex: Male

DRUGS (1)
  1. TANZEUM [Suspect]
     Active Substance: ALBIGLUTIDE
     Indication: GLYCOSYLATED HAEMOGLOBIN INCREASED
     Dosage: 30 MG, WE
     Route: 042
     Dates: start: 20160930

REACTIONS (6)
  - Device use error [Unknown]
  - Product preparation error [Unknown]
  - Flatulence [Unknown]
  - Off label use [Unknown]
  - Nausea [Unknown]
  - Circumstance or information capable of leading to device use error [Unknown]

NARRATIVE: CASE EVENT DATE: 20160930
